APPROVED DRUG PRODUCT: DACARBAZINE
Active Ingredient: DACARBAZINE
Strength: 200MG/VIAL
Dosage Form/Route: INJECTABLE;INJECTION
Application: A070990 | Product #001
Applicant: ABRAXIS PHARMACEUTICAL PRODUCTS
Approved: Aug 28, 1986 | RLD: No | RS: No | Type: DISCN